FAERS Safety Report 7099467-2 (Version None)
Quarter: 2010Q4

REPORT INFORMATION
  Report Type: 
  Country: None (occurrence: None)
  Receive Date: 20101104
  Receipt Date: 20101021
  Transmission Date: 20110411
  Serious: Yes (Other)
  Sender: FDA-Public Use
  Company Number: DSA_44132_2010

PATIENT
  Sex: Male
  Weight: 79.3795 kg

DRUGS (2)
  1. ATIVAN [Suspect]
     Indication: SLEEP DISORDER
     Dosage: (2 MG QD ORAL)
     Route: 048
     Dates: start: 20100101, end: 20100501
  2. COUMADIN [Concomitant]

REACTIONS (9)
  - CONFUSIONAL STATE [None]
  - HEADACHE [None]
  - MUSCLE SPASMS [None]
  - MUSCULOSKELETAL PAIN [None]
  - NECK PAIN [None]
  - PSYCHIATRIC SYMPTOM [None]
  - T-LYMPHOCYTE COUNT INCREASED [None]
  - TINNITUS [None]
  - VOMITING [None]
